FAERS Safety Report 6101039-0 (Version None)
Quarter: 2009Q1

REPORT INFORMATION
  Report Type: 
  Country: None (occurrence: None)
  Receive Date: 20090227
  Receipt Date: 20090213
  Transmission Date: 20090719
  Serious: Yes (Hospitalization)
  Sender: FDA-Public Use
  Company Number: KV200900213

PATIENT
  Age: 64 Year
  Sex: Male

DRUGS (3)
  1. HYOSCYAMINE SULFATE AND PHENOBARBITAL [Suspect]
     Indication: IRRITABLE BOWEL SYNDROME
     Dosage: 0.375 MG, Q12H PRN, ORAL
     Route: 048
  2. COUMADIN [Concomitant]
  3. PROPAFENONE HCL [Concomitant]

REACTIONS (2)
  - COLONIC POLYP [None]
  - DIVERTICULITIS [None]
